FAERS Safety Report 4648633-1 (Version None)
Quarter: 2005Q2

REPORT INFORMATION
  Report Type: 
  Country: None (occurrence: None)
  Receive Date: 20050427
  Receipt Date: 20050414
  Transmission Date: 20051028
  Serious: Yes (Hospitalization)
  Sender: FDA-Public Use
  Company Number: 2005049453

PATIENT
  Sex: Male

DRUGS (4)
  1. MEDROL [Suspect]
     Indication: ILL-DEFINED DISORDER
     Dosage: ORAL
     Route: 048
     Dates: end: 20050220
  2. DERINOX (CETRIMONIUM BROMIDE, NAPHAZOLINE NITRATE, PHENYLEPHRINE HYDRO [Suspect]
     Indication: ILL-DEFINED DISORDER
     Dosage: ORAL
     Route: 048
     Dates: end: 20050220
  3. TELITHROMYCIN (TELITHROMYCIN) [Suspect]
     Indication: ILL-DEFINED DISORDER
     Dosage: ORAL
     Route: 048
     Dates: end: 20050220
  4. POLERY (ACONITE TINCTURE, BELLADONNA TINCTURE, CODEINE, ETHYLMORPHINE, [Suspect]
     Indication: ILL-DEFINED DISORDER
     Dosage: ORAL
     Route: 048
     Dates: end: 20050220

REACTIONS (1)
  - ATRIAL FIBRILLATION [None]
